FAERS Safety Report 18464522 (Version 1)
Quarter: 2020Q4

REPORT INFORMATION
  Report Type: Spontaneous
  Country: JP (occurrence: JP)
  Receive Date: 20201104
  Receipt Date: 20201104
  Transmission Date: 20210114
  Serious: Yes (Hospitalization, Other)
  Sender: FDA-Public Use
  Company Number: JP-JNJFOC-A-US2016-141278

PATIENT
  Age: 33 Year
  Sex: Female

DRUGS (35)
  1. VENTAVIS [Suspect]
     Active Substance: ILOPROST
     Indication: PULMONARY ARTERIAL HYPERTENSION
     Dosage: 6 ID
     Route: 055
     Dates: start: 20160712
  2. VENTAVIS [Suspect]
     Active Substance: ILOPROST
     Dosage: 30 UG, UNK
     Route: 055
     Dates: start: 20170712, end: 20170815
  3. UPTRAVI [Suspect]
     Active Substance: SELEXIPAG
     Dosage: 1200 MCG, UNK
     Route: 048
     Dates: start: 20170413, end: 20170807
  4. UPTRAVI [Suspect]
     Active Substance: SELEXIPAG
     Route: 048
     Dates: start: 20180522
  5. ADCIRCA [Concomitant]
     Active Substance: TADALAFIL
     Route: 048
  6. BERAPROST SODIUM [Concomitant]
     Active Substance: BERAPROST SODIUM
     Indication: PULMONARY ARTERIAL HYPERTENSION
     Route: 048
     Dates: start: 20160401
  7. OPSUMIT [Suspect]
     Active Substance: MACITENTAN
     Indication: PULMONARY ARTERIAL HYPERTENSION
     Dosage: 10 MG, QD
     Route: 048
     Dates: start: 20150817
  8. VENTAVIS [Suspect]
     Active Substance: ILOPROST
     Dosage: 5 UG, UNK
     Route: 055
     Dates: start: 20160713, end: 20160814
  9. VENTAVIS [Suspect]
     Active Substance: ILOPROST
     Dosage: 15 UG, UNK
     Route: 055
     Dates: start: 20170907
  10. UPTRAVI [Suspect]
     Active Substance: SELEXIPAG
     Route: 048
     Dates: start: 20170808
  11. ADONAMIN [Concomitant]
  12. LASIX [Concomitant]
     Active Substance: FUROSEMIDE
     Indication: RIGHT VENTRICULAR FAILURE
     Route: 048
     Dates: start: 20180911
  13. VENTAVIS [Suspect]
     Active Substance: ILOPROST
     Dosage: 2.5 UG, QD
     Route: 055
     Dates: start: 20160712, end: 20160712
  14. ADCIRCA [Concomitant]
     Active Substance: TADALAFIL
     Indication: PULMONARY ARTERIAL HYPERTENSION
     Route: 048
  15. FERROUS SODIUM CITRATE [Concomitant]
     Active Substance: SODIUM FERROUS CITRATE
     Indication: ANAEMIA
     Route: 048
     Dates: start: 20171105
  16. VENTAVIS [Suspect]
     Active Substance: ILOPROST
     Dosage: 5 UG, QD
     Route: 055
     Dates: start: 20160712, end: 20160712
  17. VENTAVIS [Suspect]
     Active Substance: ILOPROST
     Route: 048
     Dates: start: 20160907
  18. ADCIRCA [Concomitant]
     Active Substance: TADALAFIL
  19. BERAPROST SODIUM [Concomitant]
     Active Substance: BERAPROST SODIUM
     Route: 048
     Dates: start: 20160402
  20. NIFEDIPINE. [Concomitant]
     Active Substance: NIFEDIPINE
     Route: 048
  21. OXYGEN. [Concomitant]
     Active Substance: OXYGEN
     Route: 055
  22. VENTAVIS [Suspect]
     Active Substance: ILOPROST
     Dosage: 5 UG, QD
     Route: 055
     Dates: start: 20160907, end: 20160928
  23. VENTAVIS [Suspect]
     Active Substance: ILOPROST
     Dosage: 5 UG, QD
     Route: 055
     Dates: start: 20170213
  24. UPTRAVI [Suspect]
     Active Substance: SELEXIPAG
     Dosage: 1200 UG, QD
     Route: 048
     Dates: start: 20170413, end: 20170807
  25. UPTRAVI [Suspect]
     Active Substance: SELEXIPAG
     Route: 048
     Dates: start: 20170413
  26. UPTRAVI [Suspect]
     Active Substance: SELEXIPAG
     Route: 048
     Dates: start: 20180731
  27. UPTRAVI [Suspect]
     Active Substance: SELEXIPAG
     Indication: PULMONARY ARTERIAL HYPERTENSION
     Dosage: 200 UG, BID
     Route: 048
     Dates: start: 20170213
  28. UPTRAVI [Suspect]
     Active Substance: SELEXIPAG
     Dosage: 1600 MCG, UNK
     Route: 048
     Dates: start: 20170808
  29. NIFEDIPINE. [Concomitant]
     Active Substance: NIFEDIPINE
     Indication: PULMONARY ARTERIAL HYPERTENSION
     Route: 048
  30. TRANEXAMIC ACID. [Concomitant]
     Active Substance: TRANEXAMIC ACID
  31. TAKECAB [Concomitant]
     Active Substance: VONOPRAZAN FUMARATE
     Route: 048
     Dates: start: 20171221
  32. VENTAVIS [Suspect]
     Active Substance: ILOPROST
     Dosage: 5 UG, QD
     Route: 055
     Dates: start: 20160929
  33. UPTRAVI [Suspect]
     Active Substance: SELEXIPAG
     Dosage: 400 UG, BID
     Route: 048
     Dates: start: 20170213, end: 20170412
  34. UPTRAVI [Suspect]
     Active Substance: SELEXIPAG
     Dosage: 800 UG, BID
     Route: 048
     Dates: start: 20170808
  35. BERAPROST SODIUM [Concomitant]
     Active Substance: BERAPROST SODIUM
     Route: 048
     Dates: start: 20170213, end: 20170412

REACTIONS (12)
  - Blood pressure decreased [Unknown]
  - Abortion missed [Unknown]
  - Nasopharyngitis [Unknown]
  - Headache [Recovering/Resolving]
  - Inappropriate schedule of product administration [Unknown]
  - Pain in jaw [Unknown]
  - Platelet count decreased [Unknown]
  - Decreased appetite [Recovering/Resolving]
  - White blood cell count decreased [Recovered/Resolved]
  - Haemoptysis [Recovered/Resolved]
  - Oropharyngeal pain [Unknown]
  - Exposure during pregnancy [Unknown]

NARRATIVE: CASE EVENT DATE: 2016
